FAERS Safety Report 9117199 (Version 1)
Quarter: 2013Q1

REPORT INFORMATION
  Report Type: Report from Study
  Country: US (occurrence: US)
  Receive Date: 20130208
  Receipt Date: 20130208
  Transmission Date: 20140127
  Serious: No
  Sender: FDA-Public Use
  Company Number: US-VERTEX PHARMACEUTICALS INC.-2013-001712

PATIENT
  Age: 55 Year
  Sex: Male

DRUGS (2)
  1. VX-950 (TELAPREVIR) [Suspect]
     Indication: HEPATITIS C
     Dosage: UNK
     Route: 048
     Dates: start: 20120514
  2. NEUPOGEN [Concomitant]
     Dosage: UNK
     Dates: start: 20120918, end: 20121126

REACTIONS (2)
  - Amnesia [Unknown]
  - Libido decreased [Unknown]
